FAERS Safety Report 6914486-1 (Version None)
Quarter: 2010Q3

REPORT INFORMATION
  Report Type: 
  Country: None (occurrence: None)
  Receive Date: 20100809
  Receipt Date: 20100726
  Transmission Date: 20110219
  Serious: Yes (Hospitalization)
  Sender: FDA-Public Use
  Company Number: CA-ELI_LILLY_AND_COMPANY-CA201006005717

PATIENT
  Age: 59 Year
  Sex: Female

DRUGS (19)
  1. FORTEO [Suspect]
     Indication: OSTEOPOROSIS
     Dosage: 20 UG, DAILY (1/D)
     Route: 058
     Dates: start: 20100505
  2. DOCUSATE SODIUM [Concomitant]
  3. ASPIRIN [Concomitant]
     Dosage: 81 MG, UNK
  4. NORVASC [Concomitant]
  5. SENOKOT [Concomitant]
  6. ATROVENT [Concomitant]
  7. ADVAIR DISKUS 100/50 [Concomitant]
  8. ALBUTEROL [Concomitant]
     Dosage: UNK, AS NEEDED
  9. CELEXA [Concomitant]
  10. PREDNISONE [Concomitant]
  11. RABEPRAZOLE SODIUM [Concomitant]
  12. VITAMIN D [Concomitant]
  13. CALCIUM [Concomitant]
  14. GLUCOSAMINE [Concomitant]
  15. MAGNESIUM [Concomitant]
  16. RAMIPRIL [Concomitant]
  17. HYDROMORPHONE HCL [Concomitant]
     Dosage: 6 MG, 2/D
  18. HYDROMORPHONE HCL [Concomitant]
     Dosage: 3 MG, 2/D
  19. DILAUDID [Concomitant]
     Dosage: 2 MG, AS NEEDED

REACTIONS (3)
  - LUNG INFECTION [None]
  - PAIN IN EXTREMITY [None]
  - WEIGHT DECREASED [None]
